FAERS Safety Report 20356501 (Version 1)
Quarter: 2022Q1

REPORT INFORMATION
  Report Type: Spontaneous
  Country: DE (occurrence: DE)
  Receive Date: 20220120
  Receipt Date: 20220120
  Transmission Date: 20220423
  Serious: Yes (Other)
  Sender: FDA-Public Use
  Company Number: DE-ELI_LILLY_AND_COMPANY-DE202201003360

PATIENT
  Age: 42 Year
  Sex: Female

DRUGS (2)
  1. EMGALITY [Suspect]
     Active Substance: GALCANEZUMAB-GNLM
     Indication: Migraine
     Dosage: UNK, MONTHLY (1/M)
     Route: 058
     Dates: start: 201910
  2. ZOLMITRIPTAN [Concomitant]
     Active Substance: ZOLMITRIPTAN
     Dosage: UNK, PRN
     Route: 065

REACTIONS (1)
  - Syncope [Recovered/Resolved]

NARRATIVE: CASE EVENT DATE: 20200601
